FAERS Safety Report 8070652-6 (Version None)
Quarter: 2012Q1

REPORT INFORMATION
  Report Type: 
  Country: None (occurrence: None)
  Receive Date: 20120125
  Receipt Date: 20120119
  Transmission Date: 20120608
  Serious: Yes (Hospitalization, Other)
  Sender: FDA-Public Use
  Company Number: PHHY2011BR111632

PATIENT
  Sex: Female

DRUGS (1)
  1. EXFORGE [Suspect]
     Indication: HYPERTENSION
     Dosage: 1 TABLET IN THE MORNING
     Dates: start: 20030101

REACTIONS (5)
  - HYPERSOMNIA [None]
  - BLOOD PRESSURE FLUCTUATION [None]
  - NERVOUSNESS [None]
  - DIVERTICULITIS [None]
  - WHITE BLOOD CELL COUNT INCREASED [None]
